FAERS Safety Report 8253199-3 (Version None)
Quarter: 2012Q2

REPORT INFORMATION
  Report Type: 
  Country: None (occurrence: None)
  Receive Date: 20120402
  Receipt Date: 20120306
  Transmission Date: 20120825
  Serious: No
  Sender: FDA-Public Use
  Company Number: US-AMGEN-USASP2012014709

PATIENT
  Age: 55 Year
  Sex: Female

DRUGS (1)
  1. ENBREL [Suspect]
     Indication: RHEUMATOID ARTHRITIS
     Dosage: 50 MG, QWK
     Dates: start: 20120222

REACTIONS (13)
  - CHILLS [None]
  - INJECTION SITE PRURITUS [None]
  - LYMPHADENOPATHY [None]
  - URTICARIA [None]
  - NODULE [None]
  - INJECTION SITE HAEMATOMA [None]
  - ERYTHEMA [None]
  - INJECTION SITE WARMTH [None]
  - NAUSEA [None]
  - INJECTION SITE URTICARIA [None]
  - SWELLING [None]
  - INJECTION SITE INDURATION [None]
  - INJECTION SITE ERYTHEMA [None]
